FAERS Safety Report 7778094-5 (Version None)
Quarter: 2011Q3

REPORT INFORMATION
  Report Type: 
  Country: None (occurrence: None)
  Receive Date: 20110926
  Receipt Date: 20110921
  Transmission Date: 20111222
  Serious: Yes (Other)
  Sender: FDA-Public Use
  Company Number: US-SANOFI-AVENTIS-2011SA061934

PATIENT
  Age: 66 Year
  Sex: Female
  Weight: 42 kg

DRUGS (7)
  1. DIPHENHYDRAMINE HYDROCHLORIDE [Concomitant]
  2. PLAVIX [Suspect]
     Route: 048
     Dates: start: 20040601
  3. DETROL [Concomitant]
  4. PLAVIX [Suspect]
     Route: 048
  5. BRETHINE [Concomitant]
  6. ASCORBIC ACID [Concomitant]
  7. AMLODIPINE BESYLATE [Concomitant]

REACTIONS (20)
  - ROAD TRAFFIC ACCIDENT [None]
  - BLOOD DISORDER [None]
  - URINARY INCONTINENCE [None]
  - VIRAL INFECTION [None]
  - BREAST CANCER [None]
  - RENAL FAILURE [None]
  - IRON DEFICIENCY ANAEMIA [None]
  - ASTHMA [None]
  - MULTIPLE ALLERGIES [None]
  - WRONG DRUG ADMINISTERED [None]
  - RENAL PAIN [None]
  - OEDEMA PERIPHERAL [None]
  - BLADDER DISORDER [None]
  - ERYTHEMA [None]
  - HYPOAESTHESIA [None]
  - HAEMORRHAGE [None]
  - INTERVERTEBRAL DISC PROTRUSION [None]
  - CONTUSION [None]
  - DEHYDRATION [None]
  - POOR PERIPHERAL CIRCULATION [None]
